FAERS Safety Report 10447039 (Version 2)
Quarter: 2014Q4

REPORT INFORMATION
  Report Type: Spontaneous
  Country: SZ (occurrence: None)
  Receive Date: 20140909
  Receipt Date: 20141014
  Transmission Date: 20150528
  Serious: Yes (Other)
  Sender: FDA-Public Use
  Company Number: 20140583

PATIENT
  Sex: Male

DRUGS (1)
  1. INJECTAFER [Suspect]
     Active Substance: FERRIC CARBOXYMALTOSE
     Indication: ANAEMIA
     Dosage: 300 MG IN 500 ML NACL.
     Dates: start: 20080415, end: 20080415

REACTIONS (2)
  - Adverse event [None]
  - Wrong technique in drug usage process [None]

NARRATIVE: CASE EVENT DATE: 20080415
